FAERS Safety Report 24450037 (Version 1)
Quarter: 2024Q4

REPORT INFORMATION
  Report Type: Spontaneous
  Country: US (occurrence: US)
  Receive Date: 20241017
  Receipt Date: 20241017
  Transmission Date: 20250115
  Serious: Yes (Hospitalization)
  Sender: BOEHRINGER INGELHEIM
  Company Number: US-Komodo Health-a23aa000003eUfDAAU

PATIENT
  Age: 57 Year
  Sex: Female

DRUGS (3)
  1. SPIRIVA RESPIMAT [Suspect]
     Active Substance: TIOTROPIUM BROMIDE
     Indication: Chronic obstructive pulmonary disease
  2. SPIRIVA RESPIMAT [Suspect]
     Active Substance: TIOTROPIUM BROMIDE
     Dosage: 2 PUFFS
     Dates: start: 202402
  3. ALBUTEROL [Concomitant]
     Active Substance: ALBUTEROL
     Indication: Product used for unknown indication

REACTIONS (13)
  - Gastrointestinal necrosis [Recovered/Resolved]
  - Aortic aneurysm [Recovered/Resolved]
  - Small intestinal obstruction [Recovered/Resolved]
  - Furuncle [Not Recovered/Not Resolved]
  - Abdominal discomfort [Recovered/Resolved]
  - Implant site infection [Not Recovered/Not Resolved]
  - Malaise [Recovered/Resolved]
  - Humerus fracture [Not Recovered/Not Resolved]
  - Abdominal distension [Recovered/Resolved]
  - Abdominal hernia [Recovered/Resolved]
  - Post procedural complication [Recovered/Resolved]
  - Dysgeusia [Recovered/Resolved]
  - Dry mouth [Recovered/Resolved]

NARRATIVE: CASE EVENT DATE: 20130501
